FAERS Safety Report 6755358-5 (Version None)
Quarter: 2010Q2

REPORT INFORMATION
  Report Type: 
  Country: None (occurrence: None)
  Receive Date: 20100604
  Receipt Date: 20100526
  Transmission Date: 20101027
  Serious: Yes (Death, Hospitalization, Other)
  Sender: FDA-Public Use
  Company Number: US-PFIZER INC-2010047774

PATIENT
  Sex: Female
  Weight: 78.685 kg

DRUGS (26)
  1. LIPITOR [Suspect]
     Indication: LIPIDS ABNORMAL
     Dosage: 20 MG, 2X/DAY
  2. CELEBREX [Suspect]
     Indication: ARTHRITIS
     Dosage: 200 MG, UNK
     Route: 048
     Dates: start: 20090101
  3. CELEBREX [Suspect]
     Indication: INTERVERTEBRAL DISC DEGENERATION
     Dosage: 200 MG, 2X/DAY
     Route: 048
     Dates: start: 20090724, end: 20100118
  4. NORVASC [Suspect]
     Indication: HYPERTENSION
     Dosage: 10 MG, UNK
     Route: 048
  5. VERAPAMIL HCL [Suspect]
     Indication: HYPERTENSION
     Dosage: 240 MG, 1X/DAY
     Route: 048
  6. TRAZODONE HCL [Suspect]
     Indication: INSOMNIA
     Dosage: 150 MG, 1X/DAY
     Route: 048
  7. FUROSEMIDE [Suspect]
     Indication: OEDEMA PERIPHERAL
     Dosage: 20 MG, UNK
     Route: 048
  8. FUROSEMIDE [Suspect]
     Dosage: UNIT DOSE: 20;
     Route: 042
  9. HYDROCODONE HYDROCHLORIDE [Suspect]
     Indication: BACK PAIN
     Dosage: UNIT DOSE 7.5; QID
  10. PROZAC [Suspect]
     Indication: DEPRESSION
     Dosage: UNIT DOSE: 20, 1X/DAY
     Route: 048
     Dates: start: 19990101
  11. MIRAPEX [Suspect]
     Indication: RESTLESS LEGS SYNDROME
     Dosage: UNIT DOSE: 0.25, 2X/DAY
     Route: 048
  12. VITAMIN D [Suspect]
     Indication: SUPPLEMENTATION THERAPY
     Dosage: 2000 MG, UNK
  13. ACETYLSALICYLIC ACID [Suspect]
     Indication: HYPERTENSION
     Dosage: 325 MG, 1X/DAY
  14. ACETYLSALICYLIC ACID [Suspect]
     Indication: CORONARY ARTERY DISEASE
  15. ALISKIREN [Concomitant]
     Dosage: UNIT DOSE 300, 1X/DAY
  16. ZITHROMAX [Concomitant]
     Dosage: UNIT DOSE 500, 1X/DAY
  17. FLEXERIL [Concomitant]
     Dosage: UNIT DOSE: 10, 1X/DAY
  18. LOVENOX [Concomitant]
     Indication: THROMBOSIS PROPHYLAXIS
     Dosage: UNIT DOSE: 40; DAILY
  19. PEPCID [Concomitant]
     Dosage: UNIT DOSE: 20, 1X/DAY
  20. ADVAIR DISKUS 100/50 [Concomitant]
     Dosage: ONE PUFF, 2X/DAY
  21. LASIX [Concomitant]
     Dosage: UNIT DOSE: 40, 1X/DAY
     Route: 042
  22. NOVOLOG [Concomitant]
     Dosage: UNK, 2X/DAY
  23. XOPENEX [Concomitant]
     Dosage: UNK, 6X/DAY
  24. NICODERM [Concomitant]
     Dosage: UNK, DAILY
     Route: 062
  25. PREDNISONE TAB [Concomitant]
     Dosage: UNIT DOSE: 40, 1X/DAY
  26. SPIRIVA [Concomitant]
     Dosage: UNK, 3X/DAY

REACTIONS (10)
  - AORTIC STENOSIS [None]
  - CARDIAC ARREST [None]
  - CARDIAC FAILURE [None]
  - CHRONIC OBSTRUCTIVE PULMONARY DISEASE [None]
  - DEPRESSION [None]
  - HYPERTENSION [None]
  - INTERVERTEBRAL DISC DEGENERATION [None]
  - LIPIDS ABNORMAL [None]
  - OSTEOARTHRITIS [None]
  - RESTLESS LEGS SYNDROME [None]
